FAERS Safety Report 14418876 (Version 2)
Quarter: 2018Q1

REPORT INFORMATION
  Report Type: Spontaneous
  Country: US (occurrence: US)
  Receive Date: 20180122
  Receipt Date: 20180123
  Transmission Date: 20180509
  Serious: No
  Sender: FDA-Public Use
  Company Number: US-SUN PHARMACEUTICAL INDUSTRIES LTD-2017US-154876

PATIENT
  Sex: Male

DRUGS (1)
  1. LOPERAMIDE [Suspect]
     Active Substance: LOPERAMIDE
     Indication: DIARRHOEA
     Dosage: 1 CAPLET ALTER THE FIRST LOOSE STOOL, AND THEN ANOTHER ONE AFTER THE NEXT
     Route: 065

REACTIONS (2)
  - Inappropriate schedule of drug administration [Unknown]
  - Expired product administered [Unknown]
